FAERS Safety Report 14179294 (Version 2)
Quarter: 2018Q1

REPORT INFORMATION
  Report Type: Report from Study
  Country: IT (occurrence: IT)
  Receive Date: 20171110
  Receipt Date: 20180227
  Transmission Date: 20180508
  Serious: Yes (Other)
  Sender: FDA-Public Use
  Company Number: IT-UCBSA-2017044537

PATIENT

DRUGS (1)
  1. LACOSAMIDE. [Suspect]
     Active Substance: LACOSAMIDE
     Indication: SEIZURE
     Dosage: 50 MG TWICE DAILY WITH INCREMENTS OF 50 MG EVERY WEEK

REACTIONS (1)
  - Seizure [Unknown]
